FAERS Safety Report 4370975-8 (Version None)
Quarter: 2004Q2

REPORT INFORMATION
  Report Type: 
  Country: None (occurrence: None)
  Receive Date: 20040601
  Receipt Date: 20040519
  Transmission Date: 20050107
  Serious: Yes (Death)
  Sender: FDA-Public Use
  Company Number: FR-JNJFOC-20040406512

PATIENT
  Age: 29 Year
  Sex: Male

DRUGS (4)
  1. RISPERDAL (RISPERIDONE) TABLETS [Suspect]
     Indication: DELUSION
     Dosage: 4 MG, 2 IN 1 DAY, ORAL
     Route: 048
     Dates: start: 20040415, end: 20040421
  2. TERCIAN (CYAMEMAZINE) [Concomitant]
  3. LEPTICUR (TROPATEPINE HYDROCHLORIDE) TABLETS [Concomitant]
  4. THERALENE (ALIMEMAZINE TARTRATE) [Concomitant]

REACTIONS (4)
  - ANURIA [None]
  - CARDIO-RESPIRATORY ARREST [None]
  - HEART RATE INCREASED [None]
  - SOMNOLENCE [None]
